FAERS Safety Report 25614562 (Version 3)
Quarter: 2025Q4

REPORT INFORMATION
  Report Type: Spontaneous
  Country: JP (occurrence: JP)
  Receive Date: 20250729
  Receipt Date: 20251115
  Transmission Date: 20260117
  Serious: Yes (Hospitalization, Disabling)
  Sender: WAYLIS THERAPEUTICS LLC
  Company Number: JP-WT-2025-05128

PATIENT
  Age: 2 Decade
  Sex: Female

DRUGS (7)
  1. LUNESTA [Suspect]
     Active Substance: ESZOPICLONE
     Dosage: 1 MG, 8 DF
     Route: 048
  2. SERTRALINE [Suspect]
     Active Substance: SERTRALINE HYDROCHLORIDE
     Dosage: 25 MG, 58 DF
     Route: 048
  3. ATOMOXETINE [Concomitant]
     Active Substance: ATOMOXETINE
     Dosage: 25 MG, 79 DF
     Route: 048
  4. ATOMOXETINE [Concomitant]
     Active Substance: ATOMOXETINE
     Dosage: 10 MG, 40 DF
     Route: 048
  5. ROZEREM [Concomitant]
     Active Substance: RAMELTEON
     Dosage: 8 MG, 18 DF
     Route: 048
  6. RISPERDAL [Concomitant]
     Active Substance: RISPERIDONE
     Dosage: 1 MG, 26 DF
     Route: 048
  7. RISPERDAL [Concomitant]
     Active Substance: RISPERIDONE
     Dosage: 0.5 MG, 51 DF
     Route: 048

REACTIONS (13)
  - Seizure [Unknown]
  - Eye movement disorder [Unknown]
  - Fall [Unknown]
  - Oxygen saturation decreased [Unknown]
  - Glossoptosis [Unknown]
  - Acidosis [Unknown]
  - Hypernatraemia [Unknown]
  - Malnutrition [Unknown]
  - White blood cell count increased [Unknown]
  - White blood cell count increased [Unknown]
  - Contusion [Unknown]
  - Overdose [Unknown]
  - Altered state of consciousness [Unknown]
